FAERS Safety Report 21996043 (Version 4)
Quarter: 2023Q4

REPORT INFORMATION
  Report Type: Spontaneous
  Country: JP (occurrence: JP)
  Receive Date: 20230215
  Receipt Date: 20231016
  Transmission Date: 20240110
  Serious: Yes (Hospitalization, Other)
  Sender: FDA-Public Use
  Company Number: JP-ONO-2021JP026496

PATIENT
  Age: 71 Year
  Sex: Male

DRUGS (21)
  1. YERVOY [Suspect]
     Active Substance: IPILIMUMAB
     Indication: Malignant melanoma
     Route: 041
     Dates: start: 20210216, end: 20210422
  2. YERVOY [Suspect]
     Active Substance: IPILIMUMAB
     Route: 041
     Dates: start: 20210422, end: 20220620
  3. OPDIVO [Suspect]
     Active Substance: NIVOLUMAB
     Indication: Malignant melanoma
     Route: 041
     Dates: start: 20200925, end: 20201203
  4. OPDIVO [Suspect]
     Active Substance: NIVOLUMAB
     Dosage: UNK
     Route: 041
     Dates: start: 20201207, end: 20210114
  5. OPDIVO [Suspect]
     Active Substance: NIVOLUMAB
     Dosage: UNK
     Route: 041
     Dates: start: 20210216, end: 20210422
  6. OPDIVO [Suspect]
     Active Substance: NIVOLUMAB
     Dosage: UNK
     Route: 041
     Dates: start: 20210726, end: 20220620
  7. PREDONINE [Suspect]
     Active Substance: PREDNISOLONE
     Indication: Oesophagitis
     Dosage: 60 MG, EVERDAY
     Route: 048
     Dates: start: 20210525, end: 20210607
  8. PREDONINE [Suspect]
     Active Substance: PREDNISOLONE
     Indication: Immune-mediated gastritis
     Dosage: 40 MG, EVERDAY
     Route: 048
     Dates: start: 20210608, end: 20210621
  9. PREDONINE [Suspect]
     Active Substance: PREDNISOLONE
     Indication: Immune-mediated pancreatitis
     Dosage: 30 MG, EVERDAY
     Route: 048
     Dates: start: 20210622
  10. PREDONINE [Suspect]
     Active Substance: PREDNISOLONE
     Indication: Gastrointestinal inflammation
     Route: 048
     Dates: start: 20210507, end: 20210524
  11. PREDONINE [Suspect]
     Active Substance: PREDNISOLONE
     Indication: Taste disorder
     Dosage: UNK UNK, Q12H
     Route: 048
  12. PREDONINE [Suspect]
     Active Substance: PREDNISOLONE
     Dosage: UNK
     Route: 048
  13. PREDONINE [Suspect]
     Active Substance: PREDNISOLONE
     Dosage: 10 MG, EVERYDAY
     Route: 048
     Dates: start: 202111
  14. PREDONINE [Suspect]
     Active Substance: PREDNISOLONE
     Dosage: UNK
     Route: 048
  15. PREDONINE [Suspect]
     Active Substance: PREDNISOLONE
     Dosage: 20 MG, EVERYDAY
     Route: 048
     Dates: start: 20211214
  16. PREDONINE [Suspect]
     Active Substance: PREDNISOLONE
     Dosage: 3 DF, EVERYDAY
     Route: 048
     Dates: start: 20211214
  17. LOXOPROFEN [Concomitant]
     Active Substance: LOXOPROFEN
     Indication: Product used for unknown indication
     Dosage: 60 MG, AT ONSET OF PAIN
     Route: 048
  18. REBAMIPIDE [Concomitant]
     Active Substance: REBAMIPIDE
     Indication: Product used for unknown indication
     Dosage: 100 MG, AT ONSET OF PAIN
     Route: 048
  19. DEXAMETHASONE DIPROPIONATE [Concomitant]
     Active Substance: DEXAMETHASONE DIPROPIONATE
     Indication: Product used for unknown indication
     Dosage: (OINTMENT, CREAM), UNK, Q12H, TRUNK (THORACOABDOMINAL REGION, BACK, BUTTOCKS)
     Route: 061
  20. GLYCOSAMINOGLYCANS [Concomitant]
     Active Substance: GLYCOSAMINOGLYCANS
     Indication: Product used for unknown indication
     Dosage: UNK, Q12H, TRUNK (THORACOABDOMINAL REGION, BACK, BUTTOCKS)
     Route: 061
  21. SULFAMETHOXAZOLE\TRIMETHOPRIM [Concomitant]
     Active Substance: SULFAMETHOXAZOLE\TRIMETHOPRIM
     Indication: Prophylaxis
     Dosage: 1 DF, Q56H
     Route: 048
     Dates: start: 20210607

REACTIONS (19)
  - Immune-mediated pancreatitis [Recovered/Resolved]
  - Gastrointestinal inflammation [Recovered/Resolved]
  - Taste disorder [Recovered/Resolved]
  - Weight decreased [Unknown]
  - Malignant neoplasm progression [Unknown]
  - Large intestine erosion [Unknown]
  - Colorectal adenoma [Unknown]
  - Asthma [Unknown]
  - Bronchitis [Unknown]
  - Hepatic enzyme increased [Recovered/Resolved]
  - Cytomegalovirus test positive [Unknown]
  - Steroid diabetes [Unknown]
  - Crowned dens syndrome [Unknown]
  - Staphylococcal infection [Unknown]
  - Decreased appetite [Unknown]
  - Diarrhoea [Unknown]
  - Immune-mediated gastritis [Recovered/Resolved]
  - Epigastric discomfort [Unknown]
  - Oesophagitis [Recovered/Resolved]

NARRATIVE: CASE EVENT DATE: 20210430
